FAERS Safety Report 12447905 (Version 1)
Quarter: 2016Q2

REPORT INFORMATION
  Report Type: Spontaneous
  Country: DE (occurrence: DE)
  Receive Date: 20160608
  Receipt Date: 20160608
  Transmission Date: 20160815
  Serious: Yes (Hospitalization)
  Sender: FDA-Public Use
  Company Number: DE-UCBSA-2016021040

PATIENT
  Sex: Female
  Weight: 47 kg

DRUGS (2)
  1. NEUPRO [Suspect]
     Active Substance: ROTIGOTINE
     Indication: PARKINSON^S DISEASE
     Dosage: 1 MG, ONCE DAILY (QD)
     Dates: start: 20160325, end: 2016
  2. NEUPRO [Suspect]
     Active Substance: ROTIGOTINE
     Dosage: 4 MG, ONCE DAILY (QD)
     Dates: start: 2016

REACTIONS (4)
  - Pruritus [Unknown]
  - Cystitis [Unknown]
  - Pharyngitis [Unknown]
  - Rhinitis [Unknown]

NARRATIVE: CASE EVENT DATE: 2016
